FAERS Safety Report 17213563 (Version 1)
Quarter: 2019Q4

REPORT INFORMATION
  Report Type: Spontaneous
  Country: DK (occurrence: DK)
  Receive Date: 20191230
  Receipt Date: 20191230
  Transmission Date: 20200122
  Serious: Yes (Hospitalization)
  Sender: FDA-Public Use
  Company Number: DK-ROCHE-2501809

PATIENT
  Age: 72 Year
  Sex: Female

DRUGS (5)
  1. OMEPRAZOLE. [Concomitant]
     Active Substance: OMEPRAZOLE
     Indication: GASTROOESOPHAGEAL REFLUX DISEASE
     Dosage: STYRKE: VARIERENDE.?DOSIS: VARIERENDE.
     Route: 048
     Dates: start: 20140718, end: 20191104
  2. LETROZOLE. [Concomitant]
     Active Substance: LETROZOLE
     Indication: BREAST CANCER
     Dosage: STYRKE: 2,5 MG.
     Route: 048
     Dates: start: 20160622, end: 20190819
  3. MABTHERA [Suspect]
     Active Substance: RITUXIMAB
     Indication: ANGIOCENTRIC LYMPHOMA
     Dosage: STYRKE: UKENDT.?DOSIS: VARIERENDE.
     Route: 042
     Dates: start: 20100423, end: 201810
  4. LOSARTAN. [Concomitant]
     Active Substance: LOSARTAN
     Indication: HYPERTENSION
     Dosage: STYRKE: 50 MG.
     Route: 048
     Dates: start: 20160414
  5. ESTRADIOL. [Concomitant]
     Active Substance: ESTRADIOL
     Indication: HORMONE THERAPY
     Dosage: STYRKE: 10 MIKROGRAM.
     Route: 067
     Dates: start: 20170104

REACTIONS (9)
  - Blood immunoglobulin G decreased [Recovering/Resolving]
  - B-lymphocyte count decreased [Recovering/Resolving]
  - Haematuria [Unknown]
  - Blood immunoglobulin A decreased [Recovering/Resolving]
  - Eosinophilic cystitis [Unknown]
  - Vaginal ulceration [Unknown]
  - Postmenopausal haemorrhage [Unknown]
  - Blood immunoglobulin M decreased [Recovering/Resolving]
  - Hydronephrosis [Unknown]
